FAERS Safety Report 12061298 (Version 1)
Quarter: 2016Q1

REPORT INFORMATION
  Report Type: Spontaneous
  Country: US (occurrence: US)
  Receive Date: 20160210
  Receipt Date: 20160210
  Transmission Date: 20160526
  Serious: No
  Sender: FDA-Public Use
  Company Number: US-ALLERGAN-1417939US

PATIENT
  Age: 57 Year
  Sex: Female

DRUGS (7)
  1. ARMOUR THYROID [Concomitant]
     Active Substance: THYROID, PORCINE
     Indication: THYROID DISORDER
     Dosage: UNK
  2. BOTOX COSMETIC [Suspect]
     Active Substance: ONABOTULINUMTOXINA
     Indication: SKIN WRINKLING
  3. BOTOX COSMETIC [Suspect]
     Active Substance: ONABOTULINUMTOXINA
     Indication: SKIN WRINKLING
     Dosage: 75 UNITS, SINGLE
     Route: 030
     Dates: start: 201407, end: 201407
  4. BOTOX COSMETIC [Suspect]
     Active Substance: ONABOTULINUMTOXINA
     Indication: SKIN WRINKLING
  5. MOBIC [Concomitant]
     Active Substance: MELOXICAM
     Indication: SPINAL OSTEOARTHRITIS
     Dosage: UNK
     Route: 048
     Dates: start: 2011
  6. BOTOX COSMETIC [Suspect]
     Active Substance: ONABOTULINUMTOXINA
     Indication: SKIN WRINKLING
     Dosage: 75 UNITS, SINGLE
     Route: 030
     Dates: start: 201403, end: 201403
  7. VITAMINS NOS [Concomitant]
     Active Substance: VITAMINS
     Indication: SKIN DISORDER
     Dosage: UNK

REACTIONS (3)
  - Acne [Unknown]
  - Injection site rash [Unknown]
  - Injection site haemorrhage [Unknown]
